FAERS Safety Report 20003912 (Version 4)
Quarter: 2022Q2

REPORT INFORMATION
  Report Type: Report from Study
  Country: CA (occurrence: CA)
  Receive Date: 20211027
  Receipt Date: 20220401
  Transmission Date: 20220721
  Serious: Yes (Other)
  Sender: FDA-Public Use
  Company Number: CA-OTSUKA-2021_032201

PATIENT
  Age: 69 Year
  Sex: Male

DRUGS (1)
  1. CEDAZURIDINE\DECITABINE [Suspect]
     Active Substance: CEDAZURIDINE\DECITABINE
     Indication: Myelodysplastic syndrome
     Dosage: (35 MG OF DECITABINE AND 100 MG OF CEDAZURIDINE), UNK
     Route: 065
     Dates: start: 20210707, end: 20220328

REACTIONS (4)
  - Biopsy bone marrow [Unknown]
  - Allogenic stem cell transplantation [Unknown]
  - Abscess oral [Unknown]
  - Therapy interrupted [Unknown]

NARRATIVE: CASE EVENT DATE: 20211001
